FAERS Safety Report 7540770-7 (Version None)
Quarter: 2011Q2

REPORT INFORMATION
  Report Type: 
  Country: None (occurrence: None)
  Receive Date: 20110610
  Receipt Date: 20110530
  Transmission Date: 20111010
  Serious: Yes (Other)
  Sender: FDA-Public Use
  Company Number: SG-ROCHE-779924

PATIENT
  Age: 61 Year
  Sex: Male

DRUGS (6)
  1. DOXORUBICIN HCL [Suspect]
     Dosage: FIVE CYCLES
     Route: 065
  2. BEVACIZUMAB [Suspect]
     Dosage: FIVE CYCLES
     Route: 065
  3. BEVACIZUMAB [Suspect]
     Route: 065
  4. DOXORUBICIN HCL [Suspect]
     Route: 065
  5. OXALIPLATIN [Suspect]
     Dosage: LOWERED DOSAGE.
     Route: 065
  6. OXALIPLATIN [Suspect]
     Route: 065

REACTIONS (7)
  - THROMBOCYTOPENIA [None]
  - MUCOSAL INFLAMMATION [None]
  - COAGULATION TEST ABNORMAL [None]
  - HAEMORRHOIDAL HAEMORRHAGE [None]
  - NEUTROPENIA [None]
  - CONSTIPATION [None]
  - HAEMATOCHEZIA [None]
